FAERS Safety Report 4602490-8 (Version None)
Quarter: 2005Q1

REPORT INFORMATION
  Report Type: 
  Country: None (occurrence: None)
  Receive Date: 20050307
  Receipt Date: 20050127
  Transmission Date: 20050727
  Serious: Yes (Hospitalization)
  Sender: FDA-Public Use
  Company Number: 10079

PATIENT
  Age: 61 Year
  Sex: Male
  Weight: 68.9467 kg

DRUGS (6)
  1. PACLITAXEL [Suspect]
     Indication: SQUAMOUS CELL CARCINOMA
     Dosage: 87 MG WEEKLY IV
     Route: 042
     Dates: start: 20050120, end: 20050220
  2. DECADRON [Concomitant]
  3. ANZEMET [Concomitant]
  4. BENADRYL [Concomitant]
  5. CIMETIDINE [Concomitant]
  6. PERCOCET [Concomitant]

REACTIONS (13)
  - BACK DISORDER [None]
  - BACK PAIN [None]
  - BLOOD PRESSURE IMMEASURABLE [None]
  - COLD SWEAT [None]
  - COMA [None]
  - ELECTROCARDIOGRAM ST SEGMENT DEPRESSION [None]
  - ERYTHEMA [None]
  - HYPERHIDROSIS [None]
  - INFUSION RELATED REACTION [None]
  - NASOPHARYNGEAL DISORDER [None]
  - PALLOR [None]
  - PULSE ABSENT [None]
  - VENTRICULAR EXTRASYSTOLES [None]
